FAERS Safety Report 8844854 (Version 6)
Quarter: 2014Q1

REPORT INFORMATION
  Report Type: Spontaneous
  Country: US (occurrence: US)
  Receive Date: 20121017
  Receipt Date: 20140122
  Transmission Date: 20141002
  Serious: Yes (Hospitalization, Other)
  Sender: FDA-Public Use
  Company Number: US-UCBSA-068817

PATIENT
  Age: 25 Year
  Sex: Female

DRUGS (5)
  1. CIMZIA [Suspect]
     Indication: CROHN^S DISEASE
     Route: 058
     Dates: start: 20121028, end: 20121207
  2. CIMZIA [Suspect]
     Indication: CROHN^S DISEASE
     Route: 058
     Dates: start: 20131019
  3. ASPIRIN [Concomitant]
  4. CODEINE [Concomitant]
  5. METHOTREXATE [Concomitant]

REACTIONS (3)
  - Crohn^s disease [Not Recovered/Not Resolved]
  - Vision blurred [Unknown]
  - Therapeutic response decreased [Recovered/Resolved]
